FAERS Safety Report 7388506-7 (Version None)
Quarter: 2011Q2

REPORT INFORMATION
  Report Type: 
  Country: None (occurrence: None)
  Receive Date: 20110401
  Receipt Date: 20110329
  Transmission Date: 20111010
  Serious: Yes (Death, Other)
  Sender: FDA-Public Use
  Company Number: PHHY2011US23467

PATIENT
  Sex: Male

DRUGS (1)
  1. RECLAST [Suspect]
     Route: 042

REACTIONS (3)
  - PAIN [None]
  - CONCOMITANT DISEASE PROGRESSION [None]
  - OSTEOPOROSIS [None]
